FAERS Safety Report 18912478 (Version 1)
Quarter: 2021Q1

REPORT INFORMATION
  Report Type: Spontaneous
  Country: GB (occurrence: GB)
  Receive Date: 20210218
  Receipt Date: 20210218
  Transmission Date: 20210420
  Serious: Yes (Other)
  Sender: FDA-Public Use
  Company Number: GB-ASTRAZENECA-2021A061034

PATIENT
  Sex: Female

DRUGS (1)
  1. SEROQUEL [Suspect]
     Active Substance: QUETIAPINE FUMARATE
     Indication: PRODUCT USED FOR UNKNOWN INDICATION
     Dosage: UNKNOWN
     Route: 048

REACTIONS (8)
  - Sleep disorder [Unknown]
  - Impaired quality of life [Unknown]
  - General physical health deterioration [Unknown]
  - Blepharospasm [Not Recovered/Not Resolved]
  - Akathisia [Not Recovered/Not Resolved]
  - Pain [Unknown]
  - Oromandibular dystonia [Not Recovered/Not Resolved]
  - Condition aggravated [Unknown]
